FAERS Safety Report 9341769 (Version 3)
Quarter: 2013Q2

REPORT INFORMATION
  Report Type: Report from Study
  Country: DE (occurrence: DE)
  Receive Date: 20130611
  Receipt Date: 20130619
  Transmission Date: 20140414
  Serious: Yes (Hospitalization, Other)
  Sender: FDA-Public Use
  Company Number: DE-ROCHE-1233373

PATIENT
  Age: 68 Year
  Sex: Male
  Weight: 67 kg

DRUGS (3)
  1. BEVACIZUMAB [Suspect]
     Indication: BRONCHIAL CARCINOMA
     Dosage: ON 06-JUN-2013, THE PATIENT RECEIVED THE LAST DOSE OF AVASTIN PRIOR TO THE EVENT.
     Route: 042
     Dates: start: 20130515
  2. ALIMTA [Concomitant]
  3. CISPLATIN [Concomitant]

REACTIONS (6)
  - Infection [Unknown]
  - C-reactive protein increased [Unknown]
  - Leukocytosis [Unknown]
  - Cerebrovascular accident [Unknown]
  - Hemiparesis [Unknown]
  - Essential thrombocythaemia [Not Recovered/Not Resolved]
